FAERS Safety Report 8542494-6 (Version None)
Quarter: 2012Q3

REPORT INFORMATION
  Report Type: 
  Country: None (occurrence: None)
  Receive Date: 20120726
  Receipt Date: 20111116
  Transmission Date: 20120928
  Serious: Yes (Other)
  Sender: FDA-Public Use
  Company Number: US-ASTRAZENECA-2011SE05819

PATIENT
  Age: 56 Year
  Sex: Female
  Weight: 101.6 kg

DRUGS (7)
  1. SEROQUEL [Suspect]
     Route: 048
  2. SEROQUEL [Suspect]
     Route: 048
     Dates: start: 20060801
  3. LYRICA [Concomitant]
  4. SEROQUEL [Suspect]
     Route: 048
  5. NEURONTIN [Concomitant]
  6. SEROQUEL [Suspect]
     Indication: BIPOLAR DISORDER
     Route: 048
  7. SEROQUEL [Suspect]
     Dosage: 25 MG FIVE TIMES PER DAY AND 5 100MG TABLET AT NIGHT
     Route: 048

REACTIONS (8)
  - HEAD INJURY [None]
  - WEIGHT INCREASED [None]
  - DRUG DOSE OMISSION [None]
  - FALL [None]
  - WRONG TECHNIQUE IN DRUG USAGE PROCESS [None]
  - CONVULSION [None]
  - OFF LABEL USE [None]
  - INCORRECT DOSE ADMINISTERED [None]
